FAERS Safety Report 4838009-6 (Version None)
Quarter: 2005Q4

REPORT INFORMATION
  Report Type: 
  Country: None (occurrence: None)
  Receive Date: 20051128
  Receipt Date: 20051121
  Transmission Date: 20060501
  Serious: Yes (Death)
  Sender: FDA-Public Use
  Company Number: BE-JNJFOC-20050505702

PATIENT
  Sex: Female

DRUGS (1)
  1. INFLIXIMAB [Suspect]
     Indication: RHEUMATOID ARTHRITIS
     Dosage: WEEKS 0, 2 6 AND THEN 1 IN 8 WEEKS FOR + 3 YEARS.
     Route: 042

REACTIONS (2)
  - CARDIAC FAILURE [None]
  - NEOPLASM [None]
